FAERS Safety Report 6151733-0 (Version None)
Quarter: 2009Q2

REPORT INFORMATION
  Report Type: 
  Country: None (occurrence: None)
  Receive Date: 20090410
  Receipt Date: 20090403
  Transmission Date: 20091009
  Serious: Yes (Hospitalization)
  Sender: FDA-Public Use
  Company Number: A0776205A

PATIENT
  Age: 32 Year
  Sex: Female
  Weight: 147.7 kg

DRUGS (8)
  1. AVANDIA [Suspect]
     Indication: TYPE 2 DIABETES MELLITUS
     Route: 048
     Dates: start: 20061201, end: 20070901
  2. AVANDARYL [Suspect]
     Indication: TYPE 2 DIABETES MELLITUS
     Route: 048
     Dates: start: 20061201, end: 20061201
  3. LANTUS [Concomitant]
     Dates: start: 20070601
  4. GLIMEPIRIDE [Concomitant]
     Dates: start: 20070101
  5. FUROSEMIDE [Concomitant]
     Dates: start: 20061001
  6. TORSEMIDE [Concomitant]
     Dates: start: 20070201
  7. LORAZEPAM [Concomitant]
     Dates: start: 20060901, end: 20070901
  8. LEXAPRO [Concomitant]
     Dates: start: 20060701, end: 20070131

REACTIONS (5)
  - ARRHYTHMIA [None]
  - CARDIAC FAILURE CONGESTIVE [None]
  - CARDIAC HYPERTROPHY [None]
  - HYPERTENSION [None]
  - PERIPHERAL VASCULAR DISORDER [None]
